FAERS Safety Report 16558433 (Version 1)
Quarter: 2019Q3

REPORT INFORMATION
  Report Type: Spontaneous
  Country: US (occurrence: US)
  Receive Date: 20190711
  Receipt Date: 20190711
  Transmission Date: 20191004
  Serious: No
  Sender: FDA-Public Use
  Company Number: US-009507513-1907USA003814

PATIENT
  Sex: Male
  Weight: 71.2 kg

DRUGS (1)
  1. REMERON [Suspect]
     Active Substance: MIRTAZAPINE

REACTIONS (1)
  - Cerebral disorder [Unknown]
